FAERS Safety Report 8552250 (Version 8)
Quarter: 2013Q3

REPORT INFORMATION
  Report Type: Spontaneous
  Country: US (occurrence: US)
  Receive Date: 20120508
  Receipt Date: 20130726
  Transmission Date: 20140515
  Serious: Yes (Hospitalization, Disabling, Other)
  Sender: FDA-Public Use
  Company Number: US-009507513-1205USA00021

PATIENT
  Sex: Female
  Weight: 62.13 kg

DRUGS (5)
  1. FOSAMAX [Suspect]
     Indication: OSTEOPOROSIS
     Dosage: 70 MG, QW
     Route: 048
     Dates: start: 2000
  2. ALENDRONATE SODIUM [Suspect]
     Indication: OSTEOPOROSIS
     Dosage: 70 MG, QW
     Route: 048
     Dates: start: 200802, end: 201006
  3. POTASSIUM (UNSPECIFIED) [Concomitant]
     Indication: OEDEMA
     Dosage: UNK
     Dates: start: 1990
  4. LASIX (FUROSEMIDE) [Concomitant]
     Indication: OEDEMA
     Dosage: 20 MG, QD
     Dates: start: 1990
  5. SYNTHROID [Concomitant]
     Indication: HYPOTHYROIDISM
     Dosage: 0.15 MG, UNK
     Dates: start: 1960

REACTIONS (34)
  - Femur fracture [Not Recovered/Not Resolved]
  - Intramedullary rod insertion [Unknown]
  - Femur fracture [Unknown]
  - Femur fracture [Unknown]
  - Osteoporosis [Not Recovered/Not Resolved]
  - Surgery [Unknown]
  - Surgery [Unknown]
  - Femur fracture [Not Recovered/Not Resolved]
  - Intervertebral disc protrusion [Unknown]
  - Foot fracture [Recovered/Resolved]
  - Artificial crown procedure [Unknown]
  - Dental prosthesis placement [Unknown]
  - Adverse event [Unknown]
  - Sinus disorder [Unknown]
  - Gout [Unknown]
  - Inflammatory pain [Unknown]
  - Back injury [Unknown]
  - Raynaud^s phenomenon [Unknown]
  - Arthritis [Unknown]
  - Hypercholesterolaemia [Unknown]
  - Spinal disorder [Unknown]
  - Gout [Unknown]
  - Uterine dilation and curettage [Unknown]
  - Device failure [Unknown]
  - Hepatitis A virus test positive [Unknown]
  - Diverticulum [Unknown]
  - Osteoarthritis [Unknown]
  - Tricuspid valve incompetence [Unknown]
  - Intervertebral disc degeneration [Unknown]
  - Lumbar spinal stenosis [Unknown]
  - Pain in extremity [Unknown]
  - Back pain [Not Recovered/Not Resolved]
  - Muscle spasms [Unknown]
  - Arthralgia [Not Recovered/Not Resolved]
